FAERS Safety Report 9773558 (Version 1)
Quarter: 2013Q4

REPORT INFORMATION
  Report Type: Spontaneous
  Country: GB (occurrence: GB)
  Receive Date: 20131219
  Receipt Date: 20131219
  Transmission Date: 20140711
  Serious: Yes (Hospitalization)
  Sender: FDA-Public Use
  Company Number: PHHY2013GB147073

PATIENT
  Age: 68 Year
  Sex: Male
  Weight: 90 kg

DRUGS (4)
  1. TAMSULOSIN [Suspect]
     Indication: PROSTATOMEGALY
     Dosage: 400 UG, QD
     Route: 048
  2. DIFFUNDOX XL [Suspect]
     Indication: PROSTATOMEGALY
     Dosage: 400 UG, QD
     Route: 048
  3. TAMSULOSINA TEVA [Suspect]
     Indication: BIOPSY PROSTATE
     Dosage: 400 UG, QD
     Route: 048
     Dates: start: 20131022
  4. METFORMIN [Concomitant]
     Dosage: 500 MG, BID
     Route: 048
     Dates: start: 2000

REACTIONS (5)
  - Defaecation urgency [Recovering/Resolving]
  - Depressed level of consciousness [Recovering/Resolving]
  - Nausea [Recovering/Resolving]
  - Vomiting [Recovering/Resolving]
  - Hypotension [Recovering/Resolving]
